FAERS Safety Report 6094118-8 (Version None)
Quarter: 2009Q1

REPORT INFORMATION
  Report Type: 
  Country: None (occurrence: None)
  Receive Date: 20090226
  Receipt Date: 20090218
  Transmission Date: 20090719
  Serious: Yes (Hospitalization)
  Sender: FDA-Public Use
  Company Number: JP-EISAI MEDICAL RESEARCH-E2090-00670-SPO-JP

PATIENT
  Age: 74 Year
  Sex: Male

DRUGS (5)
  1. EXCEGRAN [Suspect]
     Indication: EPILEPSY
     Route: 048
     Dates: start: 20081103, end: 20081121
  2. SLO-BID [Concomitant]
     Route: 048
     Dates: start: 20081102
  3. WARFARIN [Concomitant]
     Route: 048
     Dates: start: 20081102
  4. ASPIRIN [Concomitant]
     Route: 048
     Dates: start: 20081102
  5. AMLODIN [Concomitant]
     Route: 048
     Dates: start: 20081102

REACTIONS (1)
  - STEVENS-JOHNSON SYNDROME [None]
